FAERS Safety Report 15665921 (Version 1)
Quarter: 2018Q4

REPORT INFORMATION
  Report Type: Spontaneous
  Country: US (occurrence: US)
  Receive Date: 20181128
  Receipt Date: 20181128
  Transmission Date: 20190205
  Serious: Yes (Hospitalization)
  Sender: FDA-Public Use
  Company Number: None

PATIENT
  Sex: Female

DRUGS (11)
  1. ALPRAZOLAM. [Concomitant]
     Active Substance: ALPRAZOLAM
  2. KETOROLAC [Concomitant]
     Active Substance: KETOROLAC\KETOROLAC TROMETHAMINE
  3. VITAMIN D [Concomitant]
     Active Substance: CHOLECALCIFEROL
  4. POT CITRATE [Concomitant]
     Active Substance: POTASSIUM CITRATE
  5. VENTOLIN HFA [Concomitant]
     Active Substance: ALBUTEROL SULFATE
  6. IBRANCE [Suspect]
     Active Substance: PALBOCICLIB
     Indication: BREAST CANCER FEMALE
     Dosage: OTHER FREQUENCY:QD 14 DAYS OFF 7;?
     Route: 048
     Dates: start: 20170918
  7. ARIMIDEX [Concomitant]
     Active Substance: ANASTROZOLE
  8. XARELTO [Concomitant]
     Active Substance: RIVAROXABAN
  9. MAGNESIUM [Concomitant]
     Active Substance: MAGNESIUM
  10. NITROFURANTIN [Concomitant]
     Active Substance: NITROFURANTOIN
  11. CALCIUM [Concomitant]
     Active Substance: CALCIUM

REACTIONS (2)
  - Nephrolithiasis [None]
  - Urinary tract inflammation [None]
